FAERS Safety Report 10049386 (Version 1)
Quarter: 2014Q2

REPORT INFORMATION
  Report Type: Spontaneous
  Country: IQ (occurrence: IQ)
  Receive Date: 20140401
  Receipt Date: 20140401
  Transmission Date: 20141212
  Serious: Yes (Other)
  Sender: FDA-Public Use
  Company Number: IQ-BRISTOL-MYERS SQUIBB COMPANY-20582417

PATIENT
  Age: 80 Year
  Sex: Male

DRUGS (1)
  1. ONGLYZA TABS [Suspect]
     Indication: TYPE 2 DIABETES MELLITUS
     Dosage: FREQUENCY: 1X1
     Route: 048

REACTIONS (1)
  - Cardiac failure [Recovered/Resolved]
